FAERS Safety Report 6378578-0 (Version None)
Quarter: 2009Q3

REPORT INFORMATION
  Report Type: 
  Country: None (occurrence: None)
  Receive Date: 20090928
  Receipt Date: 20090924
  Transmission Date: 20100115
  Serious: Yes (Hospitalization, Other)
  Sender: FDA-Public Use
  Company Number: CL-BAYER-200922032LA

PATIENT
  Age: 27 Year
  Sex: Female
  Weight: 83 kg

DRUGS (4)
  1. YAZ [Suspect]
     Indication: DRUG USE FOR UNKNOWN INDICATION
     Route: 048
     Dates: start: 20081201, end: 20081201
  2. YASMIN [Suspect]
     Indication: CONTRACEPTION
     Route: 048
     Dates: start: 20090101, end: 20090904
  3. METFORMIN HCL [Concomitant]
     Indication: INSULIN RESISTANCE
     Route: 048
  4. FOLISAMIN [Concomitant]
     Indication: PREGNANCY
     Route: 048
     Dates: start: 20090904

REACTIONS (6)
  - BREAST PAIN [None]
  - DIARRHOEA [None]
  - DRUG EFFECT DECREASED [None]
  - ECTOPIC PREGNANCY [None]
  - PREGNANCY ON ORAL CONTRACEPTIVE [None]
  - VAGINAL HAEMORRHAGE [None]
